FAERS Safety Report 7541338-9 (Version None)
Quarter: 2011Q2

REPORT INFORMATION
  Report Type: 
  Country: None (occurrence: None)
  Receive Date: 20110612
  Receipt Date: 20110601
  Transmission Date: 20111010
  Serious: Yes (Hospitalization)
  Sender: FDA-Public Use
  Company Number: CA-ELI_LILLY_AND_COMPANY-CA201106000300

PATIENT
  Sex: Male
  Weight: 105 kg

DRUGS (19)
  1. ZYPREXA [Suspect]
     Dosage: 7.5 MG, EACH EVENING
  2. ZYPREXA [Suspect]
     Dosage: 30 MG, EACH EVENING
  3. ATIVAN [Concomitant]
  4. ZYPREXA [Suspect]
     Dosage: 2.5 MG, BID
  5. SEROQUEL [Concomitant]
  6. ZYPREXA [Suspect]
     Dosage: 10 MG, EACH EVENING
  7. ZYPREXA ZYDIS [Suspect]
     Dosage: 30 MG, EACH EVENING
  8. ZYPREXA [Suspect]
     Indication: SCHIZOID PERSONALITY DISORDER
     Dosage: 5 MG, EACH EVENING
     Dates: start: 19970520
  9. CLONAZEPAM [Concomitant]
  10. ALTACE [Concomitant]
  11. ZYPREXA ZYDIS [Suspect]
     Dosage: 20 MG, EACH EVENING
  12. DALMANE [Concomitant]
  13. ZYPREXA ZYDIS [Suspect]
     Indication: SCHIZOID PERSONALITY DISORDER
     Dosage: 5 MG, EACH EVENING
  14. ZYPREXA [Suspect]
     Dosage: 12.5 MG, EACH EVENING
  15. ZYPREXA ZYDIS [Suspect]
     Dosage: 10 MG, EACH EVENING
  16. VALPROATE SODIUM [Concomitant]
  17. NOZINAN [Concomitant]
  18. CHLORPROMAZINE HCL [Concomitant]
  19. PAXIL [Concomitant]

REACTIONS (6)
  - TYPE 2 DIABETES MELLITUS [None]
  - WEIGHT INCREASED [None]
  - OVERDOSE [None]
  - DYSLIPIDAEMIA [None]
  - IRON DEFICIENCY ANAEMIA [None]
  - UPPER RESPIRATORY TRACT INFECTION [None]
